FAERS Safety Report 4753888-9 (Version None)
Quarter: 2005Q3

REPORT INFORMATION
  Report Type: 
  Country: None (occurrence: None)
  Receive Date: 20050826
  Receipt Date: 20050812
  Transmission Date: 20060218
  Serious: Yes (Other)
  Sender: FDA-Public Use
  Company Number: HQWYE906115AUG05

PATIENT
  Sex: Female

DRUGS (4)
  1. ENBREL [Suspect]
     Indication: RHEUMATOID ARTHRITIS
     Route: 058
     Dates: start: 20050611
  2. DELTISON [Concomitant]
  3. NAPROXEN [Concomitant]
  4. CORTICOSTEROID NOS [Concomitant]

REACTIONS (2)
  - KERATITIS [None]
  - SJOGREN'S SYNDROME [None]
